FAERS Safety Report 6632802-5 (Version None)
Quarter: 2010Q1

REPORT INFORMATION
  Report Type: 
  Country: None (occurrence: None)
  Receive Date: 20100312
  Receipt Date: 20100205
  Transmission Date: 20100710
  Serious: No
  Sender: FDA-Public Use
  Company Number: US-BIOGENIDEC-2010BI004074

PATIENT
  Age: 45 Year
  Sex: Male

DRUGS (1)
  1. AVONEX [Suspect]
     Indication: MULTIPLE SCLEROSIS
     Route: 030
     Dates: start: 20081102

REACTIONS (5)
  - ABASIA [None]
  - COORDINATION ABNORMAL [None]
  - FATIGUE [None]
  - HYPOAESTHESIA [None]
  - RESTLESS LEGS SYNDROME [None]
